FAERS Safety Report 12517778 (Version 7)
Quarter: 2019Q4

REPORT INFORMATION
  Report Type: Spontaneous
  Country: US (occurrence: US)
  Receive Date: 20160630
  Receipt Date: 20191113
  Transmission Date: 20200122
  Serious: No
  Sender: FDA-Public Use
  Company Number: US-VERTEX PHARMACEUTICALS-2016-004045

PATIENT
  Age: 6 Year
  Sex: Male

DRUGS (22)
  1. ALBUTEROL. [Concomitant]
     Active Substance: ALBUTEROL
  2. RANITIDINE. [Concomitant]
     Active Substance: RANITIDINE
  3. FINEST [Concomitant]
  4. PULMOZYME [Concomitant]
     Active Substance: DORNASE ALFA
  5. KALYDECO [Suspect]
     Active Substance: IVACAFTOR
     Indication: CYSTIC FIBROSIS
     Dosage: 75 MG, BID
     Route: 048
     Dates: start: 20150824, end: 20160323
  6. BUDESONIDE. [Concomitant]
     Active Substance: BUDESONIDE
  7. CYPROHEPTADINE. [Concomitant]
     Active Substance: CYPROHEPTADINE
  8. MUPIROCIN. [Concomitant]
     Active Substance: MUPIROCIN
  9. PROAIR HFA [Concomitant]
     Active Substance: ALBUTEROL SULFATE
  10. VITAMIN E [Concomitant]
     Active Substance: .ALPHA.-TOCOPHEROL
  11. BETHKIS [Concomitant]
     Active Substance: TOBRAMYCIN
  12. FLOVENT [Concomitant]
     Active Substance: FLUTICASONE PROPIONATE
  13. FLUTICASONE. [Concomitant]
     Active Substance: FLUTICASONE
  14. POLYETHYLENE GLYCOL [Concomitant]
     Active Substance: POLYETHYLENE GLYCOLS
  15. KALYDECO [Suspect]
     Active Substance: IVACAFTOR
     Dosage: 75 MG, QD
     Route: 048
     Dates: start: 20160323
  16. SMZ-TMP [Concomitant]
     Active Substance: SULFAMETHOXAZOLE\TRIMETHOPRIM
  17. SODIUM CHLORIDE. [Concomitant]
     Active Substance: SODIUM CHLORIDE
  18. TOBRAMYCIN. [Concomitant]
     Active Substance: TOBRAMYCIN
  19. OMEPRAZOLE. [Concomitant]
     Active Substance: OMEPRAZOLE
  20. ZENPEP [Concomitant]
     Active Substance: PANCRELIPASE AMYLASE\PANCRELIPASE LIPASE\PANCRELIPASE PROTEASE
  21. KALYDECO [Suspect]
     Active Substance: IVACAFTOR
     Dosage: 150 MG TABLETS, BID
     Route: 048
     Dates: start: 20190711
  22. PROVENTIL HFA [Concomitant]
     Active Substance: ALBUTEROL SULFATE

REACTIONS (5)
  - Aspartate aminotransferase increased [Not Recovered/Not Resolved]
  - Infective pulmonary exacerbation of cystic fibrosis [Unknown]
  - Treatment noncompliance [Unknown]
  - Gamma-glutamyltransferase increased [Not Recovered/Not Resolved]
  - Alanine aminotransferase increased [Not Recovered/Not Resolved]

NARRATIVE: CASE EVENT DATE: 2015
